FAERS Safety Report 20433774 (Version 2)
Quarter: 2022Q1

REPORT INFORMATION
  Report Type: Spontaneous
  Country: CN (occurrence: CN)
  Receive Date: 20220205
  Receipt Date: 20220215
  Transmission Date: 20220423
  Serious: Yes (Hospitalization, Other)
  Sender: FDA-Public Use
  Company Number: CN-SA-SAC20220201000497

PATIENT
  Age: 41 Year
  Sex: Male
  Weight: 70 kg

DRUGS (3)
  1. CLOPIDOGREL BISULFATE [Suspect]
     Active Substance: CLOPIDOGREL BISULFATE
     Indication: Cerebrovascular accident
     Dosage: 75 MG, QD
     Route: 048
     Dates: start: 20211224, end: 20220113
  2. ASPIRIN [Suspect]
     Active Substance: ASPIRIN
     Indication: Cerebrovascular accident
     Dosage: 100 MG, QD
     Route: 048
     Dates: start: 20211224, end: 20220113
  3. DICLOFENAC SODIUM [Suspect]
     Active Substance: DICLOFENAC SODIUM
     Indication: Gout
     Dosage: 50 MG, BID
     Route: 048
     Dates: start: 20211224, end: 20220113

REACTIONS (1)
  - Lower gastrointestinal haemorrhage [Recovering/Resolving]

NARRATIVE: CASE EVENT DATE: 20220112
